FAERS Safety Report 4614248-4 (Version None)
Quarter: 2005Q1

REPORT INFORMATION
  Report Type: 
  Country: None (occurrence: None)
  Receive Date: 20050315
  Receipt Date: 20050302
  Transmission Date: 20050727
  Serious: Yes (Hospitalization)
  Sender: FDA-Public Use
  Company Number: 2005AL000861

PATIENT
  Age: 46 Year
  Sex: Male

DRUGS (3)
  1. SERAX [Suspect]
     Indication: ALCOHOL WITHDRAWAL SYNDROME
     Dosage: QD; PO
     Route: 048
     Dates: start: 20050119, end: 20050121
  2. SEROPRAM [Suspect]
     Dosage: QD; PO
     Route: 048
     Dates: end: 20050121
  3. TIAPRIDAL [Suspect]
     Dosage: 200 MH; QD; PO
     Route: 048
     Dates: start: 20050119, end: 20050121

REACTIONS (5)
  - GLASGOW COMA SCALE ABNORMAL [None]
  - HYPONATRAEMIA [None]
  - NEUROLEPTIC MALIGNANT SYNDROME [None]
  - RENAL FAILURE [None]
  - STAPHYLOCOCCAL INFECTION [None]
